FAERS Safety Report 21307527 (Version 1)
Quarter: 2022Q3

REPORT INFORMATION
  Report Type: Spontaneous
  Country: US (occurrence: US)
  Receive Date: 20220908
  Receipt Date: 20220908
  Transmission Date: 20221027
  Serious: Yes (Hospitalization, Other)
  Sender: FDA-Public Use
  Company Number: US-LUPIN PHARMACEUTICALS INC.-2022-10853

PATIENT
  Age: 24 Year
  Sex: Female

DRUGS (8)
  1. HYDROXYCHLOROQUINE [Suspect]
     Active Substance: HYDROXYCHLOROQUINE
     Indication: COVID-19 pneumonia
     Dosage: UNK (FOUR DOSES)
     Route: 065
  2. LITHIUM [Concomitant]
     Active Substance: LITHIUM
     Indication: Psychotic disorder
     Dosage: UNK MILLIGRAM (450 MILLIGRAM IN THE MORNING AND 750 MILLIGRAM AT NIGHT)
     Route: 065
  3. LITHIUM [Concomitant]
     Active Substance: LITHIUM
     Dosage: 300 MILLIGRAM, BID
     Route: 048
  4. LITHIUM [Concomitant]
     Active Substance: LITHIUM
     Dosage: 450 MILLIGRAM, QD (NIGHTY)
     Route: 065
  5. CHLORPROMAZINE [Concomitant]
     Active Substance: CHLORPROMAZINE
     Indication: Psychotic disorder
     Dosage: 50 MILLIGRAM, QD
     Route: 065
  6. CHLORPROMAZINE [Concomitant]
     Active Substance: CHLORPROMAZINE
     Indication: Agitation
  7. CLOZAPINE [Concomitant]
     Active Substance: CLOZAPINE
     Indication: Psychotic disorder
     Dosage: 300 MILLIGRAM, QD (100 MILLIGRAM IN THE MORNING AND 200 MILLIGRAM AT NIGHT)
     Route: 065
  8. LISDEXAMFETAMINE [Concomitant]
     Active Substance: LISDEXAMFETAMINE
     Indication: Psychotic disorder
     Dosage: 40 MILLIGRAM, QD
     Route: 065

REACTIONS (2)
  - Electrocardiogram QT prolonged [Unknown]
  - Off label use [Unknown]
